FAERS Safety Report 5627119-1 (Version None)
Quarter: 2008Q1

REPORT INFORMATION
  Report Type: 
  Country: None (occurrence: None)
  Receive Date: 20080212
  Receipt Date: 20080212
  Transmission Date: 20080703
  Serious: Yes (Other)
  Sender: FDA-Public Use
  Company Number: None

PATIENT
  Sex: Female
  Weight: 83.9154 kg

DRUGS (1)
  1. ZOLPIDEM [Suspect]
     Indication: INSOMNIA
     Dosage: 10 MG AT BED TIME
     Dates: start: 20060101, end: 20071110

REACTIONS (5)
  - AMNESIA [None]
  - ARTHRALGIA [None]
  - CONTUSION [None]
  - EXCORIATION [None]
  - FIBULA FRACTURE [None]
